FAERS Safety Report 13444842 (Version 3)
Quarter: 2017Q2

REPORT INFORMATION
  Report Type: Report from Study
  Country: US (occurrence: US)
  Receive Date: 20170414
  Receipt Date: 20170530
  Transmission Date: 20170830
  Serious: Yes (Hospitalization)
  Sender: FDA-Public Use
  Company Number: US-CELGENEUS-USA-20170402292

PATIENT
  Age: 68 Year
  Sex: Female
  Weight: 100.6 kg

DRUGS (9)
  1. ABRAXANE [Suspect]
     Active Substance: PACLITAXEL
     Indication: ENDOMETRIAL CANCER
     Dosage: 75
     Route: 041
     Dates: start: 20161116, end: 20170322
  2. TYLENOL [Concomitant]
     Active Substance: ACETAMINOPHEN
     Indication: TOOTHACHE
  3. ROCEPHINE [Concomitant]
     Active Substance: CEFTRIAXONE SODIUM
     Indication: PERITONITIS
     Route: 065
  4. FERROUS GLUCONATE [Concomitant]
     Active Substance: FERROUS GLUCONATE
     Indication: ANAEMIA
     Dosage: 975 MICROGRAM
     Route: 048
     Dates: start: 20161010
  5. TYLENOL [Concomitant]
     Active Substance: ACETAMINOPHEN
     Indication: PAIN
     Dosage: 500 MILLIGRAM
     Route: 048
     Dates: start: 2011
  6. FERROUS GLUCONATE [Concomitant]
     Active Substance: FERROUS GLUCONATE
     Indication: NUTRITIONAL SUPPLEMENTATION
  7. ZOFRAN [Concomitant]
     Active Substance: ONDANSETRON HYDROCHLORIDE
     Indication: NAUSEA
     Dosage: 8 MILLIGRAM
     Route: 048
     Dates: start: 20161116
  8. CARBOPLATIN. [Suspect]
     Active Substance: CARBOPLATIN
     Indication: ENDOMETRIAL CANCER
     Dosage: AUC 5
     Route: 041
     Dates: start: 20161116, end: 20170315
  9. ALBUTEROL. [Concomitant]
     Active Substance: ALBUTEROL
     Indication: CHRONIC OBSTRUCTIVE PULMONARY DISEASE
     Dosage: .63 MG/3 ML
     Route: 055
     Dates: start: 20161109

REACTIONS (6)
  - Hypoalbuminaemia [Unknown]
  - Dehydration [Unknown]
  - Small intestinal obstruction [Not Recovered/Not Resolved]
  - Acute kidney injury [Unknown]
  - Lymphocyte count decreased [Unknown]
  - Vomiting [Not Recovered/Not Resolved]

NARRATIVE: CASE EVENT DATE: 20170402
